FAERS Safety Report 25903641 (Version 1)
Quarter: 2025Q4

REPORT INFORMATION
  Report Type: Spontaneous
  Country: EU (occurrence: EU)
  Receive Date: 20251010
  Receipt Date: 20251010
  Transmission Date: 20260118
  Serious: Yes (Other)
  Sender: CELLTRION
  Company Number: EU-PFIZER INC-PV202500114184

PATIENT

DRUGS (2)
  1. ADALIMUMAB [Suspect]
     Active Substance: ADALIMUMAB
     Indication: Crohn^s disease
     Dosage: 40 MG, WEEKLY (FOR OVER TWO YEARS)
  2. ADALIMUMAB [Suspect]
     Active Substance: ADALIMUMAB

REACTIONS (6)
  - Ocular surface disease [Recovering/Resolving]
  - Corneal neovascularisation [Recovering/Resolving]
  - Rosacea [Recovering/Resolving]
  - Conjunctivitis [Recovering/Resolving]
  - Accidental overdose [Recovering/Resolving]
  - Inappropriate schedule of product administration [Recovering/Resolving]
